FAERS Safety Report 21230609 (Version 2)
Quarter: 2022Q3

REPORT INFORMATION
  Report Type: Spontaneous
  Country: US (occurrence: US)
  Receive Date: 20220818
  Receipt Date: 20220908
  Transmission Date: 20221027
  Serious: Yes (Death)
  Sender: FDA-Public Use
  Company Number: US-TEVA-2022-US-2065107

PATIENT
  Age: 36 Year
  Sex: Female

DRUGS (12)
  1. PROAIR HFA [Suspect]
     Active Substance: ALBUTEROL SULFATE
     Indication: Asthma
     Dosage: 1-2 PUFFS, EVERY 4 TO 6 HOURS, 108 (90 BASE) MCG
     Route: 055
     Dates: start: 20220509
  2. CALCIUM CARBONATE [Concomitant]
     Active Substance: CALCIUM CARBONATE
     Indication: Dyspepsia
     Dosage: 1-2 TABLETS
     Route: 048
  3. NEXPLANON [Concomitant]
     Active Substance: ETONOGESTREL
     Indication: Product used for unknown indication
     Route: 058
     Dates: start: 20181203
  4. LASIX [Concomitant]
     Active Substance: FUROSEMIDE
     Indication: Oedema peripheral
     Dosage: 20 MILLIGRAM DAILY; EACH MORNING
     Route: 048
     Dates: start: 20220126
  5. FLUARIX NOS [Concomitant]
     Active Substance: INFLUENZA VIRUS VACCINE
     Indication: Product used for unknown indication
     Dosage: ONE TIME, PREFILLED SYRINGE,
     Route: 030
     Dates: start: 20201019
  6. Levocetirizine dihydrocholoride [Concomitant]
     Indication: Product used for unknown indication
     Dosage: 5 MILLIGRAM DAILY; EVENING
     Route: 048
     Dates: start: 20210316
  7. LEVOTHYROXINE SODIUM [Concomitant]
     Active Substance: LEVOTHYROXINE SODIUM
     Indication: Hyperthyroidism
     Dosage: 75 MICROGRAM DAILY; IN THE MORNING
     Route: 048
     Dates: start: 20201019
  8. LISINOPRIL [Concomitant]
     Active Substance: LISINOPRIL
     Indication: Essential hypertension
     Dosage: 10 MILLIGRAM DAILY; IN THE AM
     Route: 048
     Dates: start: 20220126
  9. ONDANSETRON [Concomitant]
     Active Substance: ONDANSETRON
     Indication: Product used for unknown indication
     Dosage: 1 TABLET (4 MG) ON THE TONGUE AND ALLOW TO DISSOLVE
     Route: 048
     Dates: start: 20201102
  10. PREVNAR 13 [Concomitant]
     Active Substance: PNEUMOCOCCAL 13-VALENT CONJUGATE VACCINE
     Indication: Product used for unknown indication
     Dosage: SUSPENSION, ONE TIME
     Route: 030
     Dates: start: 20201019
  11. POTASSIUM CHLORIDE [Concomitant]
     Active Substance: POTASSIUM CHLORIDE
     Indication: Essential hypertension
     Dosage: 10 MILLIEQUIVALENTS DAILY; EXTENDED RELEASE, WITH FOOD
     Route: 048
     Dates: start: 20210316
  12. Tdap/Adacel [Concomitant]
     Indication: Product used for unknown indication
     Dosage: ONE TIME, SUSPENSION, (PERTUSSIS:15.5MCG/DIPHTHERIA:2LF/TETANUS:5LF)/0.5ML
     Route: 030
     Dates: start: 20201019

REACTIONS (1)
  - Death [Fatal]
